FAERS Safety Report 25776674 (Version 1)
Quarter: 2025Q3

REPORT INFORMATION
  Report Type: Spontaneous
  Country: US (occurrence: US)
  Receive Date: 20250909
  Receipt Date: 20250909
  Transmission Date: 20251021
  Serious: No
  Sender: DOMPE FARMACEUTICI
  Company Number: US-FARMAPROD-202409-3155

PATIENT
  Sex: Female

DRUGS (16)
  1. OXERVATE [Suspect]
     Active Substance: CENEGERMIN-BKBJ
     Indication: Neurotrophic keratopathy
     Route: 047
     Dates: start: 20240815
  2. OXERVATE [Suspect]
     Active Substance: CENEGERMIN-BKBJ
  3. OXERVATE [Suspect]
     Active Substance: CENEGERMIN-BKBJ
  4. MIEBO [Concomitant]
     Active Substance: PERFLUOROHEXYLOCTANE
  5. VEVYE [Concomitant]
     Active Substance: CYCLOSPORINE
  6. TYRVAYA [Concomitant]
     Active Substance: VARENICLINE TARTRATE
  7. COSOPT PF [Concomitant]
     Active Substance: DORZOLAMIDE HYDROCHLORIDE\TIMOLOL MALEATE
  8. ROSUVASTATIN CALCIUM [Concomitant]
     Active Substance: ROSUVASTATIN CALCIUM
  9. ESTRADIOL [Concomitant]
     Active Substance: ESTRADIOL
  10. ESCITALOPRAM OXALATE [Concomitant]
     Active Substance: ESCITALOPRAM OXALATE
  11. ARTIFICIAL TEARS [Concomitant]
  12. PEPCID AC [Concomitant]
     Active Substance: FAMOTIDINE
  13. DEXAMETHASONE\NEOMYCIN\POLYMYXIN B SULFATE [Concomitant]
     Active Substance: DEXAMETHASONE\NEOMYCIN\POLYMYXIN B SULFATE
  14. LATANOPROST [Concomitant]
     Active Substance: LATANOPROST
  15. ROSUVASTATIN CALCIUM [Concomitant]
     Active Substance: ROSUVASTATIN CALCIUM
  16. WHOLE BLOOD [Concomitant]
     Active Substance: WHOLE BLOOD

REACTIONS (6)
  - Eye pain [Not Recovered/Not Resolved]
  - Eye discharge [Not Recovered/Not Resolved]
  - Lacrimation increased [Unknown]
  - Eye swelling [Unknown]
  - Eye infection [Recovered/Resolved]
  - Photophobia [Unknown]
